FAERS Safety Report 19505248 (Version 1)
Quarter: 2021Q3

REPORT INFORMATION
  Report Type: Spontaneous
  Country: US (occurrence: US)
  Receive Date: 20210708
  Receipt Date: 20210708
  Transmission Date: 20211014
  Serious: No
  Sender: FDA-Public Use
  Company Number: US-AJANTA PHARMA USA INC.-2113574

PATIENT
  Age: 59 Year
  Sex: Female
  Weight: 63.64 kg

DRUGS (2)
  1. CRANBERRY. [Concomitant]
     Active Substance: CRANBERRY
  2. CHOLESTYRAMINE (ANDA 211119) [Suspect]
     Active Substance: CHOLESTYRAMINE
     Indication: DIARRHOEA
     Route: 048
     Dates: start: 202103, end: 202103

REACTIONS (4)
  - Diarrhoea [Recovered/Resolved]
  - Product solubility abnormal [Recovered/Resolved]
  - Foreign body in throat [Recovered/Resolved]
  - Drug ineffective for unapproved indication [Recovered/Resolved]

NARRATIVE: CASE EVENT DATE: 202103
